FAERS Safety Report 5884003-6 (Version None)
Quarter: 2008Q3

REPORT INFORMATION
  Report Type: 
  Country: None (occurrence: None)
  Receive Date: 20080911
  Receipt Date: 20080827
  Transmission Date: 20090109
  Serious: Yes (Hospitalization, Other)
  Sender: FDA-Public Use
  Company Number: WAES 0809USA00219

PATIENT
  Age: 69 Year
  Sex: Male
  Weight: 79.8331 kg

DRUGS (7)
  1. ZOCOR [Suspect]
     Indication: ACUTE CORONARY SYNDROME
     Dosage: 40 MG/DAILY/PO
     Route: 048
     Dates: start: 20070813
  2. TAB PLACEBO (UNSPECIFIED) UNK [Suspect]
     Indication: ACUTE CORONARY SYNDROME
     Dosage: PO
     Route: 048
     Dates: start: 20080813
  3. ASPIRIN [Suspect]
     Dosage: PO
     Route: 048
     Dates: start: 20070808
  4. CLOPIDOGREL [Suspect]
     Dosage: 75 MG/DAILY/PO
     Route: 048
     Dates: start: 20080808
  5. RAMIPRIL [Suspect]
     Dosage: 10 MG/DAILY/PO
     Route: 048
     Dates: start: 20080808
  6. TERAZOSIN HYDROCHLORIDE [Suspect]
     Dosage: 2 MG/DAILY/PO
     Route: 048
     Dates: start: 20080405
  7. LEVOFLOXACIN [Suspect]
     Dosage: 500 MG/DAILY/PO
     Route: 048
     Dates: start: 20080405, end: 20080416

REACTIONS (2)
  - PLEURISY [None]
  - SYSTEMIC LUPUS ERYTHEMATOSUS [None]
